FAERS Safety Report 15979682 (Version 1)
Quarter: 2019Q1

REPORT INFORMATION
  Report Type: Spontaneous
  Country: US (occurrence: US)
  Receive Date: 20190217
  Receipt Date: 20190217
  Transmission Date: 20190418
  Serious: Yes (Disabling, Other)
  Sender: FDA-Public Use
  Company Number: None

PATIENT
  Age: 63 Year
  Sex: Female
  Weight: 54 kg

DRUGS (3)
  1. METFORMIN ER [Concomitant]
     Active Substance: METFORMIN HYDROCHLORIDE
  2. METOPROLOL TARTRATE. [Suspect]
     Active Substance: METOPROLOL TARTRATE
     Indication: HYPERTENSION
     Dosage: ?          QUANTITY:1 TABLET(S);?
     Route: 048
     Dates: start: 20181218, end: 20190113
  3. BABY ASPIRIN [Concomitant]
     Active Substance: ASPIRIN

REACTIONS (10)
  - Hyperglycaemia [None]
  - Insomnia [None]
  - Diarrhoea [None]
  - Dyspepsia [None]
  - Abnormal dreams [None]
  - Pollakiuria [None]
  - Urine flow decreased [None]
  - Paraesthesia [None]
  - Weight decreased [None]
  - Lethargy [None]

NARRATIVE: CASE EVENT DATE: 20190113
